FAERS Safety Report 5763495-7 (Version None)
Quarter: 2008Q2

REPORT INFORMATION
  Report Type: 
  Country: None (occurrence: None)
  Receive Date: 20080529
  Receipt Date: 20080402
  Transmission Date: 20081010
  Serious: Yes (Hospitalization)
  Sender: FDA-Public Use
  Company Number: FLCT20080079

PATIENT
  Age: 66 Year
  Sex: Female

DRUGS (4)
  1. FLECTOR [Suspect]
     Indication: MUSCULOSKELETAL PAIN
     Dosage: 1 PATCH Q12H, TOPICAL
     Route: 061
     Dates: start: 20080301, end: 20080303
  2. SKELAXIN [Concomitant]
  3. VICODIN [Concomitant]
  4. LIDODERM [Concomitant]

REACTIONS (2)
  - DYSPNOEA [None]
  - RECTAL HAEMORRHAGE [None]
